FAERS Safety Report 7667369-6 (Version None)
Quarter: 2011Q3

REPORT INFORMATION
  Report Type: 
  Country: None (occurrence: None)
  Receive Date: 20110806
  Receipt Date: 20110302
  Transmission Date: 20111222
  Serious: No
  Sender: FDA-Public Use
  Company Number: US-ABBOTT-11P-163-0708607-00

PATIENT
  Sex: Male

DRUGS (4)
  1. NIASPAN [Suspect]
  2. NIASPAN [Suspect]
  3. ASPIRIN [Concomitant]
     Indication: PRODUCT USED FOR UNKNOWN INDICATION
  4. NIASPAN [Suspect]
     Indication: PRODUCT USED FOR UNKNOWN INDICATION
     Dates: start: 20100901

REACTIONS (6)
  - PARAESTHESIA [None]
  - FLUSHING [None]
  - LACRIMATION INCREASED [None]
  - CHILLS [None]
  - EYE OEDEMA [None]
  - ERYTHEMA [None]
